FAERS Safety Report 18806525 (Version 1)
Quarter: 2021Q1

REPORT INFORMATION
  Report Type: Spontaneous
  Country: DE (occurrence: DE)
  Receive Date: 20210129
  Receipt Date: 20210129
  Transmission Date: 20210419
  Serious: Yes (Other)
  Sender: FDA-Public Use
  Company Number: DE-TEVA-2021-DE-1871811

PATIENT
  Age: 67 Year
  Sex: Female

DRUGS (6)
  1. VALSARTAN HEXAL 160 MG [Suspect]
     Active Substance: VALSARTAN
     Indication: HYPERTENSION
     Dates: start: 2012
  2. L?THYROXIN 100 HENNING TABLETTEN [Concomitant]
  3. SIMVASTATIN 1 A PHARMA 20 MG [Concomitant]
  4. VALSARTAN COMP ABZ 160MG/12.5 MG [Suspect]
     Active Substance: HYDROCHLOROTHIAZIDE\VALSARTAN
     Indication: HYPERTENSION
     Dosage: 1 DOSAGE FORM CONTAINS 160 MG VALSARTAN AND 12.5 MG HYDROCHLOROTHIAZIDE
     Route: 048
     Dates: start: 2015, end: 2017
  5. VALSARTAN ABZ PHARMA 160 MG [Suspect]
     Active Substance: VALSARTAN
     Indication: HYPERTENSION
     Route: 048
     Dates: start: 2018, end: 2018
  6. VALSARTAN 1 A PHARMA 160/MG/12.5 MG [Suspect]
     Active Substance: HYDROCHLOROTHIAZIDE\VALSARTAN
     Indication: HYPERTENSION
     Dosage: 1 DOSAGE FORM CONTAINS 160 MG VALSARTAN AND 12.5 MG HYDROCHLOROTHIAZIDE
     Dates: start: 2013

REACTIONS (2)
  - Product impurity [Unknown]
  - Invasive ductal breast carcinoma [Unknown]

NARRATIVE: CASE EVENT DATE: 20191216
